FAERS Safety Report 8006285-7 (Version None)
Quarter: 2011Q4

REPORT INFORMATION
  Report Type: 
  Country: None (occurrence: None)
  Receive Date: 20111226
  Receipt Date: 20110808
  Transmission Date: 20120403
  Serious: Yes (Other)
  Sender: FDA-Public Use
  Company Number: US-BAYER-2011-006226

PATIENT
  Age: 30 Year
  Sex: Female
  Weight: 81.633 kg

DRUGS (7)
  1. MEDROXYPROGESTERONE [Concomitant]
     Indication: MENSTRUATION IRREGULAR
     Dosage: 10 MG, UNK
     Route: 048
     Dates: start: 20080101, end: 20100101
  2. OXYCODONE AND ACETAMINOPHEN [Concomitant]
     Dosage: UNK
     Route: 048
     Dates: start: 20081224
  3. METFORMIN HCL [Concomitant]
     Indication: DIABETES MELLITUS
     Dosage: 500 MG, UNK
     Route: 048
     Dates: start: 20040101
  4. YAZ [Suspect]
     Indication: PREMENSTRUAL SYNDROME
  5. PROMETHAZINE [Concomitant]
     Dosage: 12.5 MG, UNK
     Route: 048
     Dates: start: 20081224
  6. IMITREX [Concomitant]
     Dosage: 50 MG, UNK
     Route: 048
     Dates: start: 20080325, end: 20081216
  7. YAZ [Suspect]
     Indication: CONTRACEPTION
     Dosage: UNK
     Route: 048
     Dates: start: 20080516, end: 20090301

REACTIONS (6)
  - CHOLECYSTITIS CHRONIC [None]
  - GALLBLADDER INJURY [None]
  - ANXIETY [None]
  - ABDOMINAL PAIN [None]
  - PAIN [None]
  - EMOTIONAL DISTRESS [None]
